FAERS Safety Report 8362808-X (Version None)
Quarter: 2012Q2

REPORT INFORMATION
  Report Type: 
  Country: None (occurrence: None)
  Receive Date: 20120516
  Receipt Date: 20120509
  Transmission Date: 20120825
  Serious: Yes (Other)
  Sender: FDA-Public Use
  Company Number: PHHY2012NZ041032

PATIENT
  Sex: Male

DRUGS (1)
  1. CLOZARIL [Suspect]
     Indication: SCHIZOPHRENIA
     Dates: start: 20110905

REACTIONS (5)
  - C-REACTIVE PROTEIN INCREASED [None]
  - WHITE BLOOD CELL COUNT INCREASED [None]
  - GRANULOCYTES ABNORMAL [None]
  - HAEMOGLOBIN DECREASED [None]
  - NEUTROPHILIA [None]
